FAERS Safety Report 21323543 (Version 1)
Quarter: 2022Q3

REPORT INFORMATION
  Report Type: Spontaneous
  Country: US (occurrence: None)
  Receive Date: 20220910
  Receipt Date: 20220910
  Transmission Date: 20221027
  Serious: No
  Sender: FDA-Public Use
  Company Number: None

PATIENT
  Age: 29 Year
  Sex: Female
  Weight: 85.73 kg

DRUGS (2)
  1. PARAGARD T 380A [Suspect]
     Active Substance: COPPER
     Dates: start: 20220909
  2. ADVIL WITH TYLENOL [Concomitant]

REACTIONS (8)
  - Dizziness [None]
  - Nausea [None]
  - Hypotension [None]
  - Thirst [None]
  - Cold sweat [None]
  - Hypopnoea [None]
  - Fatigue [None]
  - Muscle spasms [None]

NARRATIVE: CASE EVENT DATE: 20220909
